FAERS Safety Report 18172316 (Version 1)
Quarter: 2020Q3

REPORT INFORMATION
  Report Type: Spontaneous
  Country: LU (occurrence: LU)
  Receive Date: 20200820
  Receipt Date: 20200820
  Transmission Date: 20201103
  Serious: Yes (Other)
  Sender: FDA-Public Use
  Company Number: LU-AUROBINDO-AUR-APL-2020-039528

PATIENT
  Age: 69 Year
  Sex: Male
  Weight: 103 kg

DRUGS (38)
  1. MIDAZOLAM B BRAUN [Concomitant]
     Indication: PRODUCT USED FOR UNKNOWN INDICATION
     Dosage: 20 MILLIGRAM, EVERY HOUR
     Route: 041
     Dates: start: 20200316, end: 20200320
  2. ASPEGIC [Concomitant]
     Indication: PRODUCT USED FOR UNKNOWN INDICATION
     Dosage: 100 MILLIGRAM, ONCE A DAY
     Route: 048
     Dates: start: 20200317, end: 20200408
  3. SUFENTA [Suspect]
     Active Substance: SUFENTANIL CITRATE
     Dosage: 15 MICROGRAM, EVERY HOUR
     Route: 041
     Dates: start: 20200323, end: 20200402
  4. PROPOFOL. [Suspect]
     Active Substance: PROPOFOL
     Indication: PRODUCT USED FOR UNKNOWN INDICATION
     Dosage: 200 MILLIGRAM, EVERY HOUR
     Route: 041
     Dates: start: 20200323, end: 20200407
  5. LASIX [Concomitant]
     Active Substance: FUROSEMIDE
     Indication: PRODUCT USED FOR UNKNOWN INDICATION
     Dosage: 20 MILLIGRAM, ONCE A DAY
     Route: 042
     Dates: start: 20200317, end: 20200419
  6. CEFTRIAXONE KABI [Concomitant]
     Active Substance: CEFTRIAXONE
     Indication: PRODUCT USED FOR UNKNOWN INDICATION
     Dosage: 2 GRAM, ONCE A DAY
     Route: 042
     Dates: start: 20200316, end: 20200318
  7. AZACTAM [Concomitant]
     Active Substance: AZTREONAM
     Indication: PRODUCT USED FOR UNKNOWN INDICATION
     Dosage: 2 GRAM, 3 TIMES A DAY
     Route: 042
     Dates: start: 20200406, end: 20200412
  8. GLYCOPHOS [Concomitant]
     Active Substance: SODIUM GLYCEROPHOSPHATE ANHYDROUS
     Indication: PRODUCT USED FOR UNKNOWN INDICATION
     Dosage: 1 DOSAGE FORM, ONCE A DAY
     Route: 048
     Dates: start: 20200319, end: 20200321
  9. CERNEVIT [Concomitant]
     Active Substance: VITAMINS
     Indication: PRODUCT USED FOR UNKNOWN INDICATION
     Dosage: 1 DOSAGE FORM, ONCE A DAY
     Route: 048
     Dates: start: 20200320, end: 20200419
  10. DIPIDOLOR [Suspect]
     Active Substance: PIRITRAMIDE
     Indication: PRODUCT USED FOR UNKNOWN INDICATION
     Dosage: 1 MILLIGRAM, EVERY HOUR
     Route: 041
     Dates: start: 20200320, end: 20200323
  11. DIPIDOLOR [Suspect]
     Active Substance: PIRITRAMIDE
     Dosage: 1 MILLIGRAM, EVERY HOUR
     Route: 041
     Dates: start: 20200402, end: 20200415
  12. PROPOFOL?LIPURO 1% [Suspect]
     Active Substance: PROPOFOL
     Dosage: 20 MG, 1 TOTAL (BEFORE CARE)
     Route: 041
     Dates: start: 20200320
  13. ERYTHROCIN [Suspect]
     Active Substance: ERYTHROMYCIN LACTOBIONATE
     Indication: PRODUCT USED FOR UNKNOWN INDICATION
     Dosage: 125 MILLIGRAM, FOUR TIMES/DAY
     Route: 042
     Dates: start: 20200329, end: 20200401
  14. LEVOPHED [Suspect]
     Active Substance: NOREPINEPHRINE BITARTRATE
     Indication: PRODUCT USED FOR UNKNOWN INDICATION
     Dosage: 6.8 MILLIGRAM, EVERY HOUR
     Route: 041
     Dates: start: 20200316, end: 20200321
  15. CATAPRESSAN [Suspect]
     Active Substance: CLONIDINE
     Indication: PRODUCT USED FOR UNKNOWN INDICATION
     Dosage: UNK (20 ? 30 MICROGRAMME/HOUR)
     Route: 041
     Dates: start: 20200323, end: 20200329
  16. MIDAZOLAM B BRAUN [Concomitant]
     Dosage: 20 MILLIGRAM, EVERY HOUR
     Route: 041
     Dates: start: 20200327, end: 20200329
  17. NUTRISON PROTEIN PLUS MULTI FIBRE [Concomitant]
     Indication: PRODUCT USED FOR UNKNOWN INDICATION
     Dosage: 10 MILLILITER, EVERY HOUR
     Route: 048
     Dates: start: 20200317
  18. LYSOMUCIL [Suspect]
     Active Substance: ACETYLCYSTEINE
     Indication: PRODUCT USED FOR UNKNOWN INDICATION
     Dosage: 300 MILLIGRAM, FOUR TIMES/DAY
     Route: 042
     Dates: start: 20200316, end: 20200408
  19. LEVOPHED [Suspect]
     Active Substance: NOREPINEPHRINE BITARTRATE
     Dosage: 6.8 MILLIGRAM, EVERY HOUR
     Route: 041
     Dates: start: 20200328, end: 20200330
  20. CLEXANE [Concomitant]
     Active Substance: ENOXAPARIN SODIUM
     Indication: PRODUCT USED FOR UNKNOWN INDICATION
     Dosage: 80 MILLIGRAM, TWO TIMES A DAY
     Route: 058
     Dates: start: 20200316
  21. BICLAR [Concomitant]
     Active Substance: CLARITHROMYCIN
     Indication: PRODUCT USED FOR UNKNOWN INDICATION
     Dosage: 500 MILLIGRAM, TWO TIMES A DAY
     Route: 042
     Dates: start: 20200316, end: 20200318
  22. PLAQUENIL [Suspect]
     Active Substance: HYDROXYCHLOROQUINE SULFATE
     Indication: COVID-19 PNEUMONIA
     Dosage: 400 MILLIGRAM, TWO TIMES A DAY
     Route: 048
     Dates: start: 20200317, end: 20200317
  23. PLAQUENIL [Suspect]
     Active Substance: HYDROXYCHLOROQUINE SULFATE
     Dosage: 200 MILLIGRAM, TWO TIMES A DAY
     Route: 048
     Dates: start: 20200318, end: 20200327
  24. RYDENE [Suspect]
     Active Substance: NICARDIPINE HYDROCHLORIDE
     Indication: PRODUCT USED FOR UNKNOWN INDICATION
     Dosage: UNK (2 ? 5 MILLIGRAM PER HOUR)
     Route: 042
     Dates: start: 20200330, end: 20200406
  25. VANCOMYCINE KABI [Concomitant]
     Indication: PRODUCT USED FOR UNKNOWN INDICATION
     Dosage: 1 GRAM, ONCE A DAY
     Route: 042
     Dates: start: 20200407, end: 20200414
  26. ACTRAPID [Concomitant]
     Active Substance: INSULIN HUMAN
     Indication: PRODUCT USED FOR UNKNOWN INDICATION
     Dosage: 1.5 INTERNATIONAL UNIT, EVERY HOUR
     Route: 042
     Dates: start: 20200317
  27. PIPERACILLIN AND TAZOBACTAM [Concomitant]
     Active Substance: PIPERACILLIN SODIUM\TAZOBACTAM SODIUM
     Indication: PRODUCT USED FOR UNKNOWN INDICATION
     Dosage: 4 GRAM, ONCE A DAY
     Route: 042
     Dates: start: 20200316, end: 20200316
  28. NIMBEX [Suspect]
     Active Substance: CISATRACURIUM BESYLATE
     Indication: PRODUCT USED FOR UNKNOWN INDICATION
     Dosage: 10 MILLIGRAM, EVERY HOUR
     Route: 041
     Dates: start: 20200316, end: 20200317
  29. GLYCOPHOS [Concomitant]
     Active Substance: SODIUM GLYCEROPHOSPHATE ANHYDROUS
     Dosage: 1 DOSAGE FORM, ONCE A DAY
     Route: 048
     Dates: start: 20200324, end: 20200324
  30. MOVICOL [Concomitant]
     Active Substance: POLYETHYLENE GLYCOL 3350\POTASSIUM CHLORIDE\SODIUM BICARBONATE\SODIUM CHLORIDE
     Indication: PRODUCT USED FOR UNKNOWN INDICATION
     Dosage: 1 DOSAGE FORM, ONCE A DAY
     Route: 048
     Dates: start: 20200320, end: 20200417
  31. NUTRYELT [Concomitant]
     Active Substance: IRON\MINERALS\POTASSIUM IOD\SODIUM FLUORIDE\SODIUM MOLYBDATE\SODIUM SELENITE\ZINC
     Indication: PRODUCT USED FOR UNKNOWN INDICATION
     Dosage: 1 DOSAGE FORM, ONCE A DAY
     Route: 048
     Dates: start: 20200320, end: 20200419
  32. BISOPROLOL [Suspect]
     Active Substance: BISOPROLOL
     Indication: PRODUCT USED FOR UNKNOWN INDICATION
     Dosage: 1.25 MILLIGRAM, ONCE A DAY
     Route: 048
     Dates: start: 20200331, end: 20200405
  33. PROPOFOL?LIPURO 1% [Suspect]
     Active Substance: PROPOFOL
     Indication: PRODUCT USED FOR UNKNOWN INDICATION
     Dosage: 10 MILLIGRAM, EVERY HOUR
     Route: 041
     Dates: start: 20200320, end: 20200321
  34. SUFENTA [Suspect]
     Active Substance: SUFENTANIL CITRATE
     Indication: PRODUCT USED FOR UNKNOWN INDICATION
     Dosage: 10 MICROGRAM, EVERY HOUR
     Route: 041
     Dates: start: 20200316, end: 20200320
  35. KALETRA [Suspect]
     Active Substance: LOPINAVIR\RITONAVIR
     Indication: COVID-19 PNEUMONIA
     Dosage: 5 MILLILITER, TWO TIMES A DAY
     Route: 048
     Dates: start: 20200317, end: 20200320
  36. NIMBEX [Suspect]
     Active Substance: CISATRACURIUM BESYLATE
     Dosage: 10 MILLIGRAM, EVERY HOUR
     Route: 041
     Dates: start: 20200323, end: 20200328
  37. PARACETAMOL B BRAUN [Concomitant]
     Active Substance: ACETAMINOPHEN
     Indication: PRODUCT USED FOR UNKNOWN INDICATION
     Dosage: 1 GRAM, FOUR TIMES/DAY
     Route: 042
     Dates: start: 20200316
  38. EUTHYROX [Concomitant]
     Active Substance: LEVOTHYROXINE SODIUM
     Indication: HYPOTHYROIDISM
     Dosage: 150 MICROGRAM, ONCE A DAY
     Route: 048
     Dates: start: 20200317

REACTIONS (1)
  - Hepatocellular injury [Recovered/Resolved]

NARRATIVE: CASE EVENT DATE: 20200327
